FAERS Safety Report 17892308 (Version 2)
Quarter: 2020Q4

REPORT INFORMATION
  Report Type: Spontaneous
  Country: US (occurrence: US)
  Receive Date: 20200612
  Receipt Date: 20201026
  Transmission Date: 20210113
  Serious: No
  Sender: FDA-Public Use
  Company Number: US-BIOHAVEN PHARMACEUTICALS-2020BHV00024

PATIENT
  Sex: Female
  Weight: 82.81 kg

DRUGS (1)
  1. NURTEC ODT [Suspect]
     Active Substance: RIMEGEPANT SULFATE
     Indication: MIGRAINE
     Dosage: 75 MG, ONCE
     Route: 048
     Dates: start: 20200327, end: 20200328

REACTIONS (6)
  - Lip swelling [Recovered/Resolved]
  - Glossitis [Recovered/Resolved]
  - Hypoaesthesia oral [Recovered/Resolved]
  - Tongue discomfort [Recovered/Resolved]
  - Stomatitis [Recovered/Resolved]
  - Oral discomfort [Recovered/Resolved]

NARRATIVE: CASE EVENT DATE: 2020
